FAERS Safety Report 20538773 (Version 1)
Quarter: 2022Q1

REPORT INFORMATION
  Report Type: Spontaneous
  Country: DE (occurrence: DE)
  Receive Date: 20220302
  Receipt Date: 20220302
  Transmission Date: 20220424
  Serious: Yes (Hospitalization)
  Sender: FDA-Public Use
  Company Number: DE-ADRED-07047-01

PATIENT
  Age: 96 Year
  Sex: Male
  Weight: 65 kg

DRUGS (7)
  1. RISPERDAL [Suspect]
     Active Substance: RISPERIDONE
     Indication: Product used for unknown indication
     Dosage: 0.5 MG, 1-0-1-0
     Route: 065
  2. RIVASTIGMINE [Concomitant]
     Active Substance: RIVASTIGMINE
  3. ASPIRIN [Concomitant]
     Active Substance: ASPIRIN
     Dosage: 100 MG, 1-0-0-0
  4. ATORVASTATIN [Concomitant]
     Active Substance: ATORVASTATIN
     Dosage: 10 MG, 0-0-1-0
  5. RAMIPRIL [Concomitant]
     Active Substance: RAMIPRIL
     Dosage: 2.5 MG, 1-0-1-0
  6. PIPAMPERONE [Concomitant]
     Active Substance: PIPAMPERONE
     Dosage: 20 MG, 0-1-1-0
  7. TORSEMIDE [Concomitant]
     Active Substance: TORSEMIDE
     Dosage: 5 MG, 1-0-0-0

REACTIONS (15)
  - Systemic infection [Unknown]
  - Renal impairment [Unknown]
  - General physical health deterioration [Unknown]
  - Tachypnoea [Unknown]
  - Dehydration [Unknown]
  - Acute respiratory failure [Unknown]
  - Memory impairment [Unknown]
  - Atrial fibrillation [Unknown]
  - Depressed level of consciousness [Unknown]
  - COVID-19 pneumonia [Unknown]
  - Anaemia [Unknown]
  - Pyrexia [Unknown]
  - Cough [Unknown]
  - Dyspnoea [Unknown]
  - Electrocardiogram abnormal [Unknown]
